FAERS Safety Report 9321553 (Version 3)
Quarter: 2013Q3

REPORT INFORMATION
  Report Type: Spontaneous
  Country: JP (occurrence: JP)
  Receive Date: 20130531
  Receipt Date: 20130726
  Transmission Date: 20140515
  Serious: Yes (Disabling)
  Sender: FDA-Public Use
  Company Number: JP-SANOFI-AVENTIS-2013SA053590

PATIENT
  Age: 76 Year
  Sex: Male

DRUGS (6)
  1. PLAVIX [Suspect]
     Indication: PROPHYLAXIS
     Route: 048
     Dates: start: 20130209, end: 20130306
  2. JANUVIA [Suspect]
     Indication: DIABETES MELLITUS
     Route: 048
     Dates: start: 20130209, end: 20130306
  3. MAINTATE [Concomitant]
     Indication: HYPERTENSION
     Route: 065
  4. LIPITOR [Concomitant]
     Indication: DYSLIPIDAEMIA
     Route: 048
  5. GLIMEPIRIDE [Concomitant]
     Indication: DIABETES MELLITUS
     Route: 048
     Dates: start: 20130209, end: 20130306
  6. BAYASPIRIN [Concomitant]
     Indication: CEREBRAL INFARCTION
     Route: 048
     Dates: end: 20130306

REACTIONS (1)
  - Rhabdomyolysis [Recovered/Resolved with Sequelae]
